FAERS Safety Report 18687385 (Version 1)
Quarter: 2020Q4

REPORT INFORMATION
  Report Type: Report from Study
  Country: None (occurrence: US)
  Receive Date: 20201231
  Receipt Date: 20201231
  Transmission Date: 20210114
  Serious: No
  Sender: FDA-Public Use
  Company Number: US-BIOVITRUM-2020US8063

PATIENT
  Sex: Female

DRUGS (1)
  1. KINERET [Suspect]
     Active Substance: ANAKINRA
     Indication: PRODUCT USED FOR UNKNOWN INDICATION
     Route: 058
     Dates: end: 20201222

REACTIONS (4)
  - Injection site reaction [Unknown]
  - Rash macular [Unknown]
  - Erythema [Unknown]
  - Skin discolouration [Unknown]
